FAERS Safety Report 21607584 (Version 4)
Quarter: 2023Q4

REPORT INFORMATION
  Report Type: Report from Study
  Country: US (occurrence: US)
  Receive Date: 20221117
  Receipt Date: 20231103
  Transmission Date: 20240110
  Serious: Yes (Hospitalization, Other)
  Sender: FDA-Public Use
  Company Number: US-002147023-NVSC2022US254754

PATIENT
  Sex: Male

DRUGS (1)
  1. RYDAPT [Suspect]
     Active Substance: MIDOSTAURIN
     Indication: Product used for unknown indication
     Dosage: UNK
     Route: 065

REACTIONS (6)
  - Seizure [Unknown]
  - Brain neoplasm [Unknown]
  - Macular degeneration [Unknown]
  - Progressive multifocal leukoencephalopathy [Unknown]
  - Blindness [Unknown]
  - Product dose omission issue [Unknown]
